FAERS Safety Report 7909407-9 (Version None)
Quarter: 2011Q4

REPORT INFORMATION
  Report Type: 
  Country: None (occurrence: None)
  Receive Date: 20111111
  Receipt Date: 20111108
  Transmission Date: 20120403
  Serious: Yes (Hospitalization, Other)
  Sender: FDA-Public Use
  Company Number: US-PFIZER INC-2010009191

PATIENT
  Sex: Female

DRUGS (13)
  1. FLONASE [Concomitant]
     Indication: SNEEZING
  2. MIDRIN [Concomitant]
     Indication: HEADACHE
     Dosage: UNK
     Dates: start: 20040428, end: 20090114
  3. ALBUTEROL [Concomitant]
     Indication: CHRONIC OBSTRUCTIVE PULMONARY DISEASE
     Dosage: UNK
     Dates: start: 19980720, end: 20090114
  4. LEVAQUIN [Concomitant]
     Indication: INFECTION
     Dosage: UNK
     Dates: start: 20010323, end: 20080725
  5. SOMA [Concomitant]
     Indication: MUSCLE RELAXANT THERAPY
     Dosage: UNK
     Dates: start: 20030501, end: 20080519
  6. FLONASE [Concomitant]
     Indication: RHINORRHOEA
  7. CHANTIX [Suspect]
     Indication: SMOKING CESSATION THERAPY
     Dosage: 0.5 MG, STARTER PACK
     Route: 048
     Dates: start: 20070710
  8. SINEMET [Concomitant]
     Indication: MUSCLE SPASMS
     Dosage: UNK
     Dates: start: 20030312, end: 20090114
  9. ASTELIN [Concomitant]
     Indication: CHRONIC OBSTRUCTIVE PULMONARY DISEASE
     Dosage: UNK
     Dates: start: 20050315, end: 20090114
  10. DELTASONE [Concomitant]
     Indication: CHRONIC OBSTRUCTIVE PULMONARY DISEASE
     Dosage: UNK
     Dates: start: 20010323, end: 20080109
  11. METHYLPREDNISOLONE [Concomitant]
     Indication: CHRONIC OBSTRUCTIVE PULMONARY DISEASE
     Dosage: UNK
     Dates: start: 20020625, end: 20090114
  12. FLONASE [Concomitant]
     Indication: NASAL CONGESTION
     Dosage: UNK
     Dates: start: 20030116, end: 20090114
  13. PAXIL [Concomitant]
     Indication: DEPRESSION
     Dosage: UNK
     Dates: start: 20030116, end: 20090113

REACTIONS (6)
  - ABNORMAL BEHAVIOUR [None]
  - DEPRESSION [None]
  - SUICIDE ATTEMPT [None]
  - IMPAIRED DRIVING ABILITY [None]
  - INTENTIONAL OVERDOSE [None]
  - MOOD ALTERED [None]
